FAERS Safety Report 25140899 (Version 1)
Quarter: 2025Q1

REPORT INFORMATION
  Report Type: Spontaneous
  Country: SA (occurrence: SA)
  Receive Date: 20250331
  Receipt Date: 20250331
  Transmission Date: 20250409
  Serious: Yes (Hospitalization, Other)
  Sender: Steriscience PTE
  Company Number: SA-STERISCIENCE B.V.-2025-ST-000569

PATIENT
  Sex: Female

DRUGS (10)
  1. ONDANSETRON [Suspect]
     Active Substance: ONDANSETRON
     Indication: Product used for unknown indication
     Route: 064
  2. ASPIRIN [Suspect]
     Active Substance: ASPIRIN
     Indication: Product used for unknown indication
     Route: 064
  3. ENOXAPARIN SODIUM [Suspect]
     Active Substance: ENOXAPARIN SODIUM
     Indication: Product used for unknown indication
     Route: 064
  4. PRIMPERAN [Suspect]
     Active Substance: METOCLOPRAMIDE HYDROCHLORIDE
     Indication: Product used for unknown indication
     Route: 064
  5. PHENERGAN [Suspect]
     Active Substance: PROMETHAZINE HYDROCHLORIDE
     Indication: Product used for unknown indication
     Route: 064
  6. PYRIDOXINE [Suspect]
     Active Substance: PYRIDOXINE
     Indication: Product used for unknown indication
     Route: 064
  7. CEPHRADINE [Suspect]
     Active Substance: CEPHRADINE
     Indication: Product used for unknown indication
     Route: 064
  8. YUTOPAR [Suspect]
     Active Substance: RITODRINE HYDROCHLORIDE
     Indication: Product used for unknown indication
     Route: 064
  9. DEXAMETHASONE [Suspect]
     Active Substance: DEXAMETHASONE
     Indication: Product used for unknown indication
     Route: 064
  10. MEPERIDINE [Suspect]
     Active Substance: MEPERIDINE
     Indication: Product used for unknown indication
     Route: 064

REACTIONS (2)
  - Neonatal seizure [None]
  - Foetal exposure during pregnancy [Unknown]
